FAERS Safety Report 12236938 (Version 2)
Quarter: 2016Q2

REPORT INFORMATION
  Report Type: Report from Study
  Country: US (occurrence: US)
  Receive Date: 20160405
  Receipt Date: 20160520
  Transmission Date: 20160815
  Serious: No
  Sender: FDA-Public Use
  Company Number: PHEH2016US007864

PATIENT
  Age: 53 Year
  Sex: Female

DRUGS (2)
  1. COSENTYX [Suspect]
     Active Substance: SECUKINUMAB
     Indication: PSORIATIC ARTHROPATHY
     Dosage: 300 MG, (150MG/ML X2)
     Route: 003
     Dates: start: 20160330
  2. HYDROCHLOROTHIAZIDE. [Concomitant]
     Active Substance: HYDROCHLOROTHIAZIDE
     Indication: PRODUCT USED FOR UNKNOWN INDICATION
     Dosage: 1 DF, UNK
     Route: 065

REACTIONS (12)
  - Arthralgia [Unknown]
  - Cough [Unknown]
  - Incorrect route of drug administration [Unknown]
  - Flushing [Unknown]
  - Ear infection [Unknown]
  - Joint swelling [Unknown]
  - Pyrexia [Unknown]
  - Erythema [Unknown]
  - Peripheral swelling [Unknown]
  - Sinusitis [Unknown]
  - Malaise [Unknown]
  - Headache [Unknown]

NARRATIVE: CASE EVENT DATE: 20160330
